FAERS Safety Report 8172802-X (Version None)
Quarter: 2012Q1

REPORT INFORMATION
  Report Type: 
  Country: None (occurrence: None)
  Receive Date: 20120229
  Receipt Date: 20120216
  Transmission Date: 20120608
  Serious: No
  Sender: FDA-Public Use
  Company Number: US-B.I. PHARMACEUTICALS,INC./RIDGEFIELD-2012-BP-03021BP

PATIENT
  Sex: Male

DRUGS (14)
  1. CRESTOR [Concomitant]
     Indication: BLOOD CHOLESTEROL INCREASED
     Route: 048
  2. SPIRIVA [Suspect]
     Indication: CHRONIC OBSTRUCTIVE PULMONARY DISEASE
     Dosage: 18 MCG
     Route: 055
     Dates: start: 20080101
  3. METFORMIN HYDROCHLORIDE [Concomitant]
     Indication: DIABETES MELLITUS
     Route: 048
  4. OXYCONTIN [Concomitant]
     Indication: BACK PAIN
     Route: 048
  5. SPIRIVA [Suspect]
     Indication: EMPHYSEMA
  6. XANAX [Concomitant]
     Indication: MENTAL DISORDER
     Dosage: 6 MG
     Route: 048
  7. PROVENTIL-HFA [Concomitant]
     Indication: EMPHYSEMA
  8. NITROSTAT [Concomitant]
     Indication: CHEST PAIN
     Route: 060
  9. MS CONTIN [Concomitant]
     Indication: BACK PAIN
     Route: 048
  10. PROVENTIL-HFA [Concomitant]
     Indication: CHRONIC OBSTRUCTIVE PULMONARY DISEASE
     Route: 055
  11. ASPIRIN [Concomitant]
     Indication: ROUTINE HEALTH MAINTENANCE
     Dosage: 81 MG
     Route: 048
  12. COREG [Concomitant]
     Indication: HYPERTENSION
     Dosage: 6.25 MG
     Route: 048
  13. MS CONTIN [Concomitant]
     Indication: NECK PAIN
  14. OXYCONTIN [Concomitant]
     Indication: NECK PAIN

REACTIONS (1)
  - DYSPNOEA [None]
